FAERS Safety Report 10049979 (Version 2)
Quarter: 2014Q2

REPORT INFORMATION
  Report Type: Spontaneous
  Country: HN (occurrence: HN)
  Receive Date: 20140401
  Receipt Date: 20140410
  Transmission Date: 20141212
  Serious: Yes (Death, Other)
  Sender: FDA-Public Use
  Company Number: HN-PFIZER INC-2014086337

PATIENT
  Age: 30 Year
  Sex: Female

DRUGS (2)
  1. CYTOSAR [Suspect]
     Indication: MYELOID LEUKAEMIA
     Dosage: UNK
     Dates: start: 201403
  2. DOXORUBICIN HCL [Suspect]
     Indication: MYELOID LEUKAEMIA
     Dosage: UNK
     Dates: start: 201403

REACTIONS (11)
  - Death [Fatal]
  - Gingival bleeding [Unknown]
  - Vaginal haemorrhage [Unknown]
  - Altered state of consciousness [Unknown]
  - Generalised tonic-clonic seizure [Unknown]
  - Mydriasis [Unknown]
  - Brain herniation [Unknown]
  - Intracranial pressure increased [Unknown]
  - Haemorrhage intracranial [Unknown]
  - Decerebrate posture [Unknown]
  - Thrombocytopenia [Unknown]
